FAERS Safety Report 5001838-2 (Version None)
Quarter: 2006Q2

REPORT INFORMATION
  Report Type: 
  Country: None (occurrence: None)
  Receive Date: 20060515
  Receipt Date: 20060320
  Transmission Date: 20061013
  Serious: Yes (Disabling)
  Sender: FDA-Public Use
  Company Number: GB-GLAXOSMITHKLINE-B0416416A

PATIENT
  Age: 69 Year
  Sex: Female

DRUGS (9)
  1. SEROXAT [Suspect]
     Indication: DEPRESSION
     Route: 048
     Dates: start: 20041012, end: 20050817
  2. VENLAFAXINE HCL [Suspect]
     Indication: DEPRESSION
     Route: 048
     Dates: start: 20041201, end: 20050801
  3. MIRTAZAPINE [Suspect]
     Indication: DEPRESSION
     Dosage: 45MG PER DAY
     Route: 048
     Dates: start: 20050929, end: 20060214
  4. LAMOTRIGINE [Concomitant]
     Dosage: 100MG FOUR TIMES PER DAY
     Route: 048
     Dates: start: 20041008, end: 20060301
  5. CARBAMAZEPINE [Concomitant]
     Dosage: 600MG AT NIGHT
     Route: 048
     Dates: start: 20041012, end: 20041129
  6. RISPERIDONE [Concomitant]
     Indication: PSYCHOTIC DISORDER
     Dosage: 3MG TWICE PER DAY
     Route: 048
     Dates: start: 20041023, end: 20050929
  7. TRIFLUOPERAZINE HCL [Concomitant]
     Indication: PSYCHOTIC DISORDER
     Dosage: 15MG AT NIGHT
     Route: 048
     Dates: start: 20031017, end: 20041023
  8. ZOPICLONE [Concomitant]
  9. SSRI [Concomitant]

REACTIONS (2)
  - BRUXISM [None]
  - DYSTONIA [None]
